FAERS Safety Report 9355090 (Version 3)
Quarter: 2013Q3

REPORT INFORMATION
  Report Type: Spontaneous
  Country: US (occurrence: US)
  Receive Date: 20130619
  Receipt Date: 20130729
  Transmission Date: 20140515
  Serious: Yes (Life-Threatening, Hospitalization, Disabling, Other)
  Sender: FDA-Public Use
  Company Number: US-009507513-1306USA007791

PATIENT
  Sex: Female

DRUGS (6)
  1. SINGULAIR [Suspect]
     Indication: HYPERSENSITIVITY
     Dosage: 5 MG, QD
     Route: 048
     Dates: start: 20090406, end: 201204
  2. ALBUTEROL [Concomitant]
  3. TRILEPTAL [Concomitant]
  4. KEPPRA [Concomitant]
  5. ZYRTEC [Concomitant]
  6. NASONEX [Concomitant]

REACTIONS (5)
  - Shunt occlusion [Unknown]
  - Device malfunction [Unknown]
  - Hemiplegia [Recovering/Resolving]
  - Convulsion [Recovering/Resolving]
  - Headache [Recovering/Resolving]
